FAERS Safety Report 4500798-8 (Version None)
Quarter: 2004Q4

REPORT INFORMATION
  Report Type: 
  Country: None (occurrence: None)
  Receive Date: 20041115
  Receipt Date: 20041104
  Transmission Date: 20050328
  Serious: Yes (Hospitalization)
  Sender: FDA-Public Use
  Company Number: US-BRISTOL-MYERS SQUIBB COMPANY-12757597

PATIENT
  Age: 76 Year
  Sex: Male
  Weight: 82 kg

DRUGS (1)
  1. HYDREA [Suspect]
     Indication: CELLULITIS ORBITAL
     Dosage: DURATION = ^FEW DAYS^
     Route: 048

REACTIONS (1)
  - RENAL FAILURE [None]
